FAERS Safety Report 5570229-8 (Version None)
Quarter: 2007Q4

REPORT INFORMATION
  Report Type: 
  Country: None (occurrence: None)
  Receive Date: 20071219
  Receipt Date: 20071212
  Transmission Date: 20080405
  Serious: Yes (Other)
  Sender: FDA-Public Use
  Company Number: 2007337526

PATIENT
  Age: 45 Year
  Sex: Male
  Weight: 86.2 kg

DRUGS (1)
  1. ROGAINE [Suspect]
     Indication: ALOPECIA
     Dosage: 1 ML 2 TIMES A DAY (2 IN 1 D), TOPICAL
     Route: 061
     Dates: start: 20071020, end: 20071208

REACTIONS (3)
  - HEADACHE [None]
  - RENAL FAILURE [None]
  - SWELLING FACE [None]
